FAERS Safety Report 8483069-7 (Version None)
Quarter: 2012Q3

REPORT INFORMATION
  Report Type: 
  Country: None (occurrence: None)
  Receive Date: 20120702
  Receipt Date: 20120626
  Transmission Date: 20120928
  Serious: Yes (Death, Hospitalization, Disabling, Other)
  Sender: FDA-Public Use
  Company Number: US-CELGENEUS-163-21880-12032322

PATIENT
  Sex: Male
  Weight: 66.556 kg

DRUGS (24)
  1. OMEPRAZOLE [Concomitant]
     Dosage: 20 MILLIGRAM
     Route: 065
  2. COMBIVENT [Concomitant]
     Route: 065
  3. FENTANYL CITRATE [Concomitant]
     Dosage: 75 MICROGRAM
     Route: 065
  4. LEVOFLOXACIN [Concomitant]
     Route: 065
  5. DILTIAZEM HCL [Concomitant]
     Route: 065
  6. CALCIUM + D [Concomitant]
     Dosage: 600 MILLIGRAM
     Route: 065
  7. HYDROCODONE BITARTRATE + ACETAMINOPHEN [Concomitant]
     Route: 065
  8. DIAZEPAM [Concomitant]
     Route: 065
  9. METOPROLOL TARTRATE [Concomitant]
     Route: 065
  10. FISH OIL [Concomitant]
     Route: 065
  11. DEXTROSE 5% AND SODIUM CHLORIDE 0.45% IN PLASTIC CONTAINER [Concomitant]
     Route: 065
  12. COLACE [Concomitant]
     Route: 065
  13. POTASSIUM [Concomitant]
     Route: 065
  14. PROCHLORPERAZINE MALEATE [Concomitant]
     Route: 065
  15. REVLIMID [Suspect]
     Indication: MULTIPLE MYELOMA
     Dosage: 10 MILLIGRAM
     Route: 048
     Dates: start: 20110321, end: 20120319
  16. CITALOPRAM HYDROBROMIDE [Concomitant]
     Dosage: 20 MILLIGRAM
     Route: 065
  17. VITAMIN D [Concomitant]
     Route: 065
  18. DILANTIN [Concomitant]
     Dosage: 100 MILLIGRAM
     Route: 065
  19. OXYCODONE HCL [Concomitant]
     Route: 065
  20. DILAUDID [Concomitant]
     Dosage: 2 MILLIGRAM
     Route: 065
  21. ONDANSETRON HCL [Concomitant]
     Route: 065
  22. OXYCODONE/ACETAMINOPHEN [Concomitant]
     Route: 065
  23. OXYCODONE HCL AND ACETAMINOPHEN [Concomitant]
     Route: 065
  24. PHENERGAN HCL [Concomitant]
     Route: 065

REACTIONS (3)
  - ANAEMIA [None]
  - BILE DUCT CANCER [None]
  - CHRONIC OBSTRUCTIVE PULMONARY DISEASE [None]
